FAERS Safety Report 16543768 (Version 1)
Quarter: 2019Q3

REPORT INFORMATION
  Report Type: Spontaneous
  Country: GR (occurrence: GR)
  Receive Date: 20190709
  Receipt Date: 20190709
  Transmission Date: 20191004
  Serious: Yes (Hospitalization)
  Sender: FDA-Public Use
  Company Number: GR-MYLANLABS-2019M1063538

PATIENT
  Age: 13 Month
  Sex: Female

DRUGS (1)
  1. ARIPIPRAZOLE MYLAN [Suspect]
     Active Substance: ARIPIPRAZOLE
     Indication: PRODUCT USED FOR UNKNOWN INDICATION
     Dosage: UNK, ONCE

REACTIONS (6)
  - Slow response to stimuli [Recovered/Resolved]
  - Gaze palsy [Unknown]
  - Accidental exposure to product by child [Recovered/Resolved]
  - Pyrexia [Recovered/Resolved]
  - Lethargy [Recovered/Resolved]
  - Altered state of consciousness [Recovered/Resolved]
